FAERS Safety Report 16849723 (Version 1)
Quarter: 2019Q3

REPORT INFORMATION
  Report Type: Spontaneous
  Country: DE (occurrence: DE)
  Receive Date: 20190925
  Receipt Date: 20190925
  Transmission Date: 20191005
  Serious: Yes (Hospitalization)
  Sender: FDA-Public Use
  Company Number: PHHY2019DE218497

PATIENT
  Age: 66 Year
  Sex: Female
  Weight: 70 kg

DRUGS (18)
  1. PACLITAXEL. [Suspect]
     Active Substance: PACLITAXEL
     Dosage: 300 MG, Q3W
     Route: 042
     Dates: start: 20121001
  2. VITAMIN B6 [Concomitant]
     Active Substance: PYRIDOXINE HYDROCHLORIDE
     Indication: PARAESTHESIA
     Dosage: 40 MG, UNK
     Route: 048
     Dates: start: 20121203, end: 20121221
  3. CARBOPLATIN. [Suspect]
     Active Substance: CARBOPLATIN
     Dosage: 430 MG, Q3W
     Route: 042
     Dates: start: 20120904
  4. CARBOPLATIN. [Suspect]
     Active Substance: CARBOPLATIN
     Dosage: 430 MG, Q3W
     Route: 042
     Dates: start: 20121001
  5. FENISTIL [Concomitant]
     Active Substance: DIMETHINDENE
     Indication: PRODUCT USED FOR UNKNOWN INDICATION
     Dosage: 4 MG, UNK
     Route: 042
     Dates: start: 20120814, end: 20121112
  6. CARBOPLATIN. [Suspect]
     Active Substance: CARBOPLATIN
     Indication: PRODUCT USED FOR UNKNOWN INDICATION
     Dosage: 430 MG, Q3W
     Route: 042
     Dates: start: 20120814, end: 20121022
  7. BEVACIZUMAB. [Suspect]
     Active Substance: BEVACIZUMAB
     Indication: OVARIAN CANCER
     Dosage: 1050 MG, Q3W
     Route: 042
     Dates: start: 20120814
  8. KEVATRIL [Concomitant]
     Active Substance: GRANISETRON HYDROCHLORIDE
     Indication: PRODUCT USED FOR UNKNOWN INDICATION
     Dosage: 1 MG, UNK
     Route: 042
     Dates: start: 20120814, end: 20121112
  9. FORTECORTIN [Concomitant]
     Active Substance: DEXAMETHASONE
     Indication: PRODUCT USED FOR UNKNOWN INDICATION
     Dosage: 20 MG, UNK
     Route: 042
     Dates: start: 20120814, end: 20121112
  10. PACLITAXEL. [Suspect]
     Active Substance: PACLITAXEL
     Dosage: 295 MG, Q3W
     Route: 042
     Dates: start: 20121022
  11. CARBOPLATIN. [Suspect]
     Active Substance: CARBOPLATIN
     Dosage: 430 MG, Q3W
     Route: 042
     Dates: start: 20121022
  12. PACLITAXEL. [Suspect]
     Active Substance: PACLITAXEL
     Indication: PRODUCT USED FOR UNKNOWN INDICATION
     Dosage: 300 MG, Q3W
     Route: 042
     Dates: start: 20120814, end: 20121001
  13. BEVACIZUMAB. [Suspect]
     Active Substance: BEVACIZUMAB
     Dosage: 1050 MG, Q3W
     Route: 042
     Dates: start: 20120904
  14. BEVACIZUMAB. [Suspect]
     Active Substance: BEVACIZUMAB
     Dosage: 885 MG, Q3W
     Route: 042
     Dates: start: 20121001
  15. RANITIC [Concomitant]
     Active Substance: RANITIDINE HYDROCHLORIDE
     Indication: PRODUCT USED FOR UNKNOWN INDICATION
     Dosage: 50 MG, UNK
     Route: 042
     Dates: start: 20120814, end: 20121112
  16. CARBOPLATIN. [Suspect]
     Active Substance: CARBOPLATIN
     Dosage: 450 MG, Q3W
     Route: 042
     Dates: start: 20121112
  17. PACLITAXEL. [Suspect]
     Active Substance: PACLITAXEL
     Dosage: 300 MG, Q3W
     Route: 042
     Dates: start: 20120904
  18. PACLITAXEL. [Suspect]
     Active Substance: PACLITAXEL
     Dosage: 280 MG, Q3W
     Route: 042
     Dates: start: 20121112

REACTIONS (2)
  - Mechanical ileus [Recovered/Resolved]
  - Weight decreased [Recovered/Resolved]

NARRATIVE: CASE EVENT DATE: 20120909
